FAERS Safety Report 19995016 (Version 9)
Quarter: 2022Q2

REPORT INFORMATION
  Report Type: Report from Study
  Country: US (occurrence: US)
  Receive Date: 20211025
  Receipt Date: 20220422
  Transmission Date: 20220721
  Serious: Yes (Hospitalization)
  Sender: FDA-Public Use
  Company Number: US-GLAXOSMITHKLINE-US2021AMR147414

PATIENT
  Age: 60 Year
  Sex: Male
  Weight: 122 kg

DRUGS (1)
  1. BELANTAMAB MAFODOTIN [Suspect]
     Active Substance: BELANTAMAB MAFODOTIN
     Indication: Plasma cell myeloma
     Dosage: 300 MG
     Dates: start: 20210623, end: 20220308

REACTIONS (7)
  - Coronavirus infection [Unknown]
  - Keratopathy [Unknown]
  - Eye disorder [Recovered/Resolved]
  - Visual acuity reduced [Unknown]
  - Dry eye [Not Recovered/Not Resolved]
  - Blood immunoglobulin G increased [Unknown]
  - Disease progression [Unknown]

NARRATIVE: CASE EVENT DATE: 20210704
